FAERS Safety Report 4736498-9 (Version None)
Quarter: 2005Q3

REPORT INFORMATION
  Report Type: 
  Country: None (occurrence: None)
  Receive Date: 20050804
  Receipt Date: 20050804
  Transmission Date: 20060218
  Serious: Yes (Life-Threatening, Other)
  Sender: FDA-Public Use
  Company Number: None

PATIENT
  Age: 74 Year
  Sex: Female
  Weight: 66.6788 kg

DRUGS (1)
  1. PLAVIX [Suspect]
     Indication: STENT PLACEMENT

REACTIONS (3)
  - ASTHENIA [None]
  - NAUSEA [None]
  - WEIGHT DECREASED [None]
